FAERS Safety Report 17722472 (Version 2)
Quarter: 2020Q3

REPORT INFORMATION
  Report Type: Spontaneous
  Country: US (occurrence: US)
  Receive Date: 20200429
  Receipt Date: 20200716
  Transmission Date: 20201102
  Serious: No
  Sender: FDA-Public Use
  Company Number: US-PFIZER INC-2020166033

PATIENT
  Age: 59 Year
  Sex: Female
  Weight: 65.77 kg

DRUGS (1)
  1. BOSULIF [Suspect]
     Active Substance: BOSUTINIB MONOHYDRATE
     Indication: CHRONIC MYELOID LEUKAEMIA
     Dosage: 1000 MG, 2 TABLETS TWICE A DAY
     Route: 048
     Dates: start: 201811

REACTIONS (4)
  - Product prescribing error [Unknown]
  - Poor quality product administered [Unknown]
  - Product physical issue [Unknown]
  - Cough [Unknown]

NARRATIVE: CASE EVENT DATE: 201811
